FAERS Safety Report 17160905 (Version 3)
Quarter: 2020Q1

REPORT INFORMATION
  Report Type: Spontaneous
  Country: US (occurrence: US)
  Receive Date: 20191216
  Receipt Date: 20200220
  Transmission Date: 20200409
  Serious: Yes (Hospitalization, Other)
  Sender: FDA-Public Use
  Company Number: US-SA-2019SA343291

PATIENT
  Age: 52 Year

DRUGS (2)
  1. ALPROLIX [Suspect]
     Active Substance: EFTRENONACOG ALFA
     Dosage: 5000 U
     Route: 042
  2. ALPROLIX [Suspect]
     Active Substance: EFTRENONACOG ALFA
     Dosage: 10000 IU
     Route: 042

REACTIONS (4)
  - Haemarthrosis [Recovered/Resolved]
  - Arthropathy [Recovering/Resolving]
  - Joint swelling [Recovering/Resolving]
  - Knee operation [Recovered/Resolved]

NARRATIVE: CASE EVENT DATE: 2019
